FAERS Safety Report 15573766 (Version 1)
Quarter: 2018Q4

REPORT INFORMATION
  Report Type: Spontaneous
  Country: US (occurrence: US)
  Receive Date: 20181101
  Receipt Date: 20181101
  Transmission Date: 20190205
  Serious: No
  Sender: FDA-Public Use
  Company Number: US-ELI_LILLY_AND_COMPANY-US201810013890

PATIENT
  Sex: Male

DRUGS (3)
  1. HUMALOG JUNIOR KWIKPEN [Suspect]
     Active Substance: INSULIN LISPRO
     Dosage: UNK, PRN(SLIDING SCALE)
     Route: 058
  2. LANTUS [Concomitant]
     Active Substance: INSULIN GLARGINE
     Indication: DIABETES MELLITUS
     Dosage: 24 U, EACH EVENING (NIGHT)
     Route: 065
  3. HUMALOG JUNIOR KWIKPEN [Suspect]
     Active Substance: INSULIN LISPRO
     Indication: DIABETES MELLITUS
     Dosage: UNK, PRN(SLIDING SCALE)
     Route: 058

REACTIONS (1)
  - Blood glucose increased [Unknown]
